FAERS Safety Report 24672718 (Version 3)
Quarter: 2025Q2

REPORT INFORMATION
  Report Type: Spontaneous
  Country: GB (occurrence: GB)
  Receive Date: 20241127
  Receipt Date: 20250404
  Transmission Date: 20250716
  Serious: Yes (Hospitalization)
  Sender: PFIZER
  Company Number: GB-PFM-2024-06273

PATIENT
  Age: 11 Year
  Sex: Female
  Weight: 48.5 kg

DRUGS (6)
  1. BINIMETINIB [Suspect]
     Active Substance: BINIMETINIB
     Indication: Craniopharyngioma
     Dosage: 45 MG, BID (2/DAY)
     Route: 048
     Dates: start: 20241114, end: 20241116
  2. BINIMETINIB [Suspect]
     Active Substance: BINIMETINIB
     Dosage: 30 MG, BID (2/DAY), 33 PERCENT DOSE REDUCTION
     Route: 048
     Dates: start: 20241128, end: 20241129
  3. BINIMETINIB [Suspect]
     Active Substance: BINIMETINIB
     Dosage: 30 MG IN THE MORNING 15 MG AT NIGHT (50 PERCENT DOSE REDUCTION).
     Route: 048
     Dates: start: 20241212
  4. HYDROCORTISONE IVAL [Concomitant]
     Indication: Hypopituitarism
     Route: 042
     Dates: start: 20241116, end: 20241118
  5. HYDROCORTISONE [HYDROCORTISONE HYDROGEN SUCCINATE] [Concomitant]
     Indication: Hypopituitarism
     Route: 048
     Dates: start: 20241118
  6. ACETAMINOPHEN [Concomitant]
     Active Substance: ACETAMINOPHEN
     Route: 065
     Dates: start: 20241116

REACTIONS (8)
  - Central serous chorioretinopathy [Recovered/Resolved]
  - Vomiting [Recovered/Resolved]
  - Hypotension [Unknown]
  - Diarrhoea [Recovered/Resolved]
  - Nausea [Recovered/Resolved]
  - Off label use [Unknown]
  - Product use in unapproved indication [Unknown]
  - Product administered to patient of inappropriate age [Unknown]

NARRATIVE: CASE EVENT DATE: 20241114
